FAERS Safety Report 17068164 (Version 13)
Quarter: 2022Q4

REPORT INFORMATION
  Report Type: Report from Study
  Country: US (occurrence: US)
  Receive Date: 20191122
  Receipt Date: 20221102
  Transmission Date: 20230113
  Serious: Yes (Hospitalization, Other)
  Sender: FDA-Public Use
  Company Number: US-NOVARTISPH-NVSC2019US043709

PATIENT
  Age: 35 Year
  Sex: Female
  Weight: 145.13 kg

DRUGS (9)
  1. TREPROSTINIL [Suspect]
     Active Substance: TREPROSTINIL
     Indication: Pulmonary arterial hypertension
     Dosage: 29 NG/KG/MIN, CONT STRENGTH: 2.5 MG/ML
     Route: 042
     Dates: start: 20191108
  2. TREPROSTINIL [Suspect]
     Active Substance: TREPROSTINIL
     Dosage: 44 NG/KG.MIN, CONT, STRENGTH: 2.5 MG/ML
     Route: 042
  3. TREPROSTINIL [Suspect]
     Active Substance: TREPROSTINIL
     Dosage: 58 NG/KG.MIN, CONT, STRENGTH: 5 MG/ML
     Route: 042
  4. TREPROSTINIL [Suspect]
     Active Substance: TREPROSTINIL
     Dosage: 60 NG/KG.MIN, CONT, STRENGTH: 5 MG/ML
     Route: 042
  5. TREPROSTINIL [Suspect]
     Active Substance: TREPROSTINIL
     Dosage: 60 NG/KG.MIN, CONT, STRENGTH: 5 MG/ML
     Route: 042
  6. TREPROSTINIL [Suspect]
     Active Substance: TREPROSTINIL
     Dosage: 60 NG/KG/MIN, CONT, STRENGTH: 5 MG/ML
     Route: 042
  7. TREPROSTINIL [Suspect]
     Active Substance: TREPROSTINIL
     Dosage: 60 NG/KG/MIN, CONT (STRENGTH: 5 MG/ML)
     Route: 042
  8. OPSUMIT [Concomitant]
     Active Substance: MACITENTAN
     Indication: Product used for unknown indication
     Dosage: UNK
     Route: 065
  9. SILDENAFIL CITRATE [Concomitant]
     Active Substance: SILDENAFIL CITRATE
     Indication: Product used for unknown indication
     Dosage: UNK
     Route: 065

REACTIONS (18)
  - Septic shock [Unknown]
  - Device related infection [Unknown]
  - Sepsis [Unknown]
  - Fluid retention [Unknown]
  - Dyspnoea [Unknown]
  - Body temperature increased [Unknown]
  - Chills [Unknown]
  - Nasopharyngitis [Unknown]
  - Feeling abnormal [Unknown]
  - Cough [Unknown]
  - Catheter site discharge [Unknown]
  - Secretion discharge [Unknown]
  - Headache [Not Recovered/Not Resolved]
  - Catheter site erythema [Unknown]
  - Fatigue [Not Recovered/Not Resolved]
  - Infusion site pain [Unknown]
  - Infusion site reaction [Unknown]
  - Device breakage [Unknown]

NARRATIVE: CASE EVENT DATE: 20200910
